FAERS Safety Report 4810410-6 (Version None)
Quarter: 2005Q4

REPORT INFORMATION
  Report Type: 
  Country: None (occurrence: None)
  Receive Date: 20051024
  Receipt Date: 20051012
  Transmission Date: 20060501
  Serious: Yes (Life-Threatening, Hospitalization)
  Sender: FDA-Public Use
  Company Number: 2005135592

PATIENT
  Age: 47 Year
  Sex: Male

DRUGS (2)
  1. LINCOCIN [Suspect]
     Indication: PHARYNGEAL OEDEMA
     Dosage: INTRAVENOUS
     Route: 042
     Dates: start: 20050924
  2. PARBON (SEE IMAGE) [Concomitant]

REACTIONS (5)
  - DEPRESSED LEVEL OF CONSCIOUSNESS [None]
  - DYSPHAGIA [None]
  - DYSPNOEA [None]
  - LARYNGEAL OEDEMA [None]
  - RESPIRATORY ARREST [None]
